FAERS Safety Report 5367705-X (Version None)
Quarter: 2007Q2

REPORT INFORMATION
  Report Type: 
  Country: None (occurrence: None)
  Receive Date: 20070622
  Receipt Date: 20070327
  Transmission Date: 20071010
  Serious: No
  Sender: FDA-Public Use
  Company Number: US-ASTRAZENECA-2007UW06001

PATIENT
  Age: 49 Year
  Sex: Female
  Weight: 86.2 kg

DRUGS (11)
  1. PULMICORT RESPULES [Suspect]
     Indication: CHRONIC OBSTRUCTIVE PULMONARY DISEASE
     Route: 055
     Dates: start: 20070318
  2. PROZAC [Concomitant]
  3. WELLBUTRIN [Concomitant]
  4. THORAZINE [Concomitant]
  5. PROLIXIN [Concomitant]
  6. BENADRYL [Concomitant]
  7. OXYGEN [Concomitant]
  8. NEXIUM [Concomitant]
  9. ZYRTEC [Concomitant]
  10. COUMADIN [Concomitant]
  11. COLCHICINE [Concomitant]

REACTIONS (5)
  - DEPRESSED MOOD [None]
  - DRUG INTERACTION [None]
  - HOT FLUSH [None]
  - MALAISE [None]
  - MOOD SWINGS [None]
